FAERS Safety Report 9435345 (Version 5)
Quarter: 2015Q1

REPORT INFORMATION
  Report Type: Report from Study
  Country: US (occurrence: US)
  Receive Date: 20130801
  Receipt Date: 20150126
  Transmission Date: 20150721
  Serious: Yes (Hospitalization, Other)
  Sender: FDA-Public Use
  Company Number: US-GLAXOSMITHKLINE-A0959846E

PATIENT
  Age: 53 Year
  Sex: Female
  Weight: 97 kg

DRUGS (4)
  1. DABRAFENIB CAPSULE [Suspect]
     Active Substance: DABRAFENIB
     Indication: METASTATIC MALIGNANT MELANOMA
     Dosage: 150 MG, BID
     Route: 048
     Dates: start: 20110914, end: 20111231
  2. DABRAFENIB CAPSULE [Suspect]
     Active Substance: DABRAFENIB
     Dosage: 100 MG, BID
     Route: 048
     Dates: start: 20120124
  3. TRAMETINIB TABLET [Suspect]
     Active Substance: TRAMETINIB
     Indication: METASTATIC MALIGNANT MELANOMA
     Dosage: 2 MG, QD
     Route: 048
     Dates: start: 20110914, end: 20111230
  4. TRAMETINIB TABLET [Suspect]
     Active Substance: TRAMETINIB
     Dosage: 1.5 MG, QD
     Route: 048
     Dates: start: 20120124

REACTIONS (1)
  - Pancreatitis [Recovered/Resolved]

NARRATIVE: CASE EVENT DATE: 20130719
